FAERS Safety Report 23937485 (Version 2)
Quarter: 2024Q2

REPORT INFORMATION
  Report Type: Spontaneous
  Country: JP (occurrence: JP)
  Receive Date: 20240604
  Receipt Date: 20240614
  Transmission Date: 20240715
  Serious: Yes (Other)
  Sender: FDA-Public Use
  Company Number: JP-ARGENX-2024-ARGX-JP003811AA

PATIENT

DRUGS (8)
  1. VYVGART [Suspect]
     Active Substance: EFGARTIGIMOD ALFA-FCAB
     Dosage: UNK
     Route: 042
     Dates: start: 202302, end: 20240322
  2. EFGARTIGIMOD ALFA\HYALURONIDASE-QVFC [Suspect]
     Active Substance: EFGARTIGIMOD ALFA\HYALURONIDASE-QVFC
     Indication: Myasthenia gravis
     Dosage: UNK
     Route: 058
     Dates: start: 20240513, end: 20240603
  3. PREDONINE [Concomitant]
     Active Substance: PREDNISOLONE
     Dosage: 10 MG
     Route: 065
  4. MESTINON [Concomitant]
     Active Substance: PYRIDOSTIGMINE BROMIDE
     Dosage: 60 MG, BID (MORNING, EVENING)
     Route: 065
  5. SULFAMETHOXAZOLE\TRIMETHOPRIM [Concomitant]
     Active Substance: SULFAMETHOXAZOLE\TRIMETHOPRIM
     Dosage: UNK
     Route: 065
  6. LANSOPRAZOLE [Concomitant]
     Active Substance: LANSOPRAZOLE
     Dosage: UNK
     Route: 065
  7. PROGRAF [Concomitant]
     Active Substance: TACROLIMUS
     Dosage: UNK, DAILY (NIGHT)
     Route: 065
  8. ROSUVASTATIN [Concomitant]
     Active Substance: ROSUVASTATIN
     Dosage: UNK
     Route: 065

REACTIONS (15)
  - Gastrointestinal lymphoma [Unknown]
  - Grip strength decreased [Unknown]
  - Hyperlipidaemia [Unknown]
  - Hyperparathyroidism [Unknown]
  - Asthenia [Unknown]
  - Muscular weakness [Unknown]
  - Chest discomfort [Unknown]
  - Sense of oppression [Recovered/Resolved]
  - Dyspnoea [Recovered/Resolved]
  - Eyelid ptosis [Unknown]
  - Procedural headache [Recovered/Resolved]
  - Malaise [Unknown]
  - Malaise [Unknown]
  - Sense of oppression [Unknown]
  - Headache [Unknown]

NARRATIVE: CASE EVENT DATE: 20240513
